FAERS Safety Report 9960954 (Version 1)
Quarter: 2014Q1

REPORT INFORMATION
  Report Type: Report from Study
  Country: US (occurrence: US)
  Receive Date: 20140305
  Receipt Date: 20140305
  Transmission Date: 20141002
  Serious: No
  Sender: FDA-Public Use
  Company Number: US-ABBVIE-13P-163-1107977-00

PATIENT
  Age: 57 Year
  Sex: Female
  Weight: 75.36 kg

DRUGS (8)
  1. HUMIRA [Suspect]
     Indication: RHEUMATOID ARTHRITIS
     Route: 058
  2. HUMIRA [Suspect]
     Route: 058
     Dates: start: 20130612
  3. METHOTREXATE [Suspect]
     Indication: RHEUMATOID ARTHRITIS
  4. ENBREL [Suspect]
     Indication: RHEUMATOID ARTHRITIS
  5. SIMPONI [Suspect]
     Indication: RHEUMATOID ARTHRITIS
  6. PLAQUENIL [Concomitant]
     Indication: RHEUMATOID ARTHRITIS
  7. MOBIC [Concomitant]
     Indication: RHEUMATOID ARTHRITIS
  8. VITAMINS [Concomitant]
     Indication: PRODUCT USED FOR UNKNOWN INDICATION

REACTIONS (5)
  - Migraine [Not Recovered/Not Resolved]
  - Dyskinesia [Recovered/Resolved]
  - Fatigue [Recovering/Resolving]
  - Speech disorder [Recovered/Resolved]
  - Dysgraphia [Recovered/Resolved]
